FAERS Safety Report 4909104-8 (Version None)
Quarter: 2006Q1

REPORT INFORMATION
  Report Type: 
  Country: None (occurrence: None)
  Receive Date: 20060208
  Receipt Date: 20060125
  Transmission Date: 20060701
  Serious: Yes (Hospitalization)
  Sender: FDA-Public Use
  Company Number: US-2005-022815

PATIENT
  Age: 49 Year
  Sex: Female
  Weight: 98 kg

DRUGS (11)
  1. BETASERON (INTERFERON BETA - 1B) INJECTION, 250UG [Suspect]
     Indication: MULTIPLE SCLEROSIS
     Dosage: 8 MIU, EVERY 2D, SUBCUTANEOUS
     Route: 058
     Dates: start: 20050609
  2. MAGNESIUM OXIDE (MAGNESIUM OXIDE) [Concomitant]
  3. GLUCOPHAGE [Concomitant]
  4. GLYBURIDE [Concomitant]
  5. VASOTEC [Concomitant]
  6. MUCINEX (GUAIFENESIN) [Concomitant]
  7. QUININE SULFATE [Concomitant]
  8. BACLOFEN [Concomitant]
  9. ALBUTEROL [Concomitant]
  10. ADVAIR DISKUS 100/50 [Concomitant]
  11. FLOVENT [Concomitant]

REACTIONS (6)
  - BACK PAIN [None]
  - BLOOD CHOLESTEROL INCREASED [None]
  - CHEST PAIN [None]
  - CONSTIPATION [None]
  - DYSPNOEA [None]
  - PAIN IN EXTREMITY [None]
